FAERS Safety Report 6153339-6 (Version None)
Quarter: 2009Q2

REPORT INFORMATION
  Report Type: 
  Country: None (occurrence: None)
  Receive Date: 20090413
  Receipt Date: 20090409
  Transmission Date: 20091009
  Serious: No
  Sender: FDA-Public Use
  Company Number: US-B.I. PHARMACEUTICALS,INC./RIDGEFIELD-2009-BP-04412BP

PATIENT
  Sex: Female

DRUGS (1)
  1. FLOMAX [Suspect]
     Indication: BLADDER SPASM
     Dosage: .4MG
     Route: 048
     Dates: start: 20090402, end: 20090403

REACTIONS (1)
  - MUSCULAR WEAKNESS [None]
